FAERS Safety Report 9409841 (Version 2)
Quarter: 2013Q3

REPORT INFORMATION
  Report Type: Spontaneous
  Country: TR (occurrence: TR)
  Receive Date: 20130719
  Receipt Date: 20130807
  Transmission Date: 20140515
  Serious: Yes (Hospitalization)
  Sender: FDA-Public Use
  Company Number: TR-PFIZER INC-2013210460

PATIENT
  Age: 59 Year
  Sex: Female

DRUGS (1)
  1. PANTPAS [Suspect]
     Indication: GASTROOESOPHAGEAL REFLUX DISEASE
     Dosage: UNK
     Route: 065
     Dates: start: 20130709

REACTIONS (3)
  - Hypersensitivity [Recovering/Resolving]
  - Dysphagia [Recovering/Resolving]
  - Anxiety [Recovering/Resolving]
